FAERS Safety Report 6934939-X (Version None)
Quarter: 2010Q3

REPORT INFORMATION
  Report Type: 
  Country: None (occurrence: None)
  Receive Date: 20100821
  Receipt Date: 20100811
  Transmission Date: 20110219
  Serious: Yes (Other)
  Sender: FDA-Public Use
  Company Number: GXKR2010GR09011

PATIENT
  Age: 48 Year
  Sex: Male

DRUGS (4)
  1. ACETYLSALICYLIC ACID SRT [Suspect]
     Indication: STENT PLACEMENT
     Dosage: 325 MG/DAY
     Route: 065
  2. CLOPIDOGREL BISULFATE [Suspect]
     Indication: STENT PLACEMENT
     Dosage: 75 MG/DAY
     Route: 065
  3. ULTRAVIST 150 [Suspect]
     Indication: UROGRAM
     Dosage: 50 ML, UNK
  4. SIROLIMUS [Suspect]

REACTIONS (16)
  - ACUTE MYOCARDIAL INFARCTION [None]
  - ASTHENIA [None]
  - CHEST DISCOMFORT [None]
  - CORONARY ANGIOPLASTY [None]
  - CORONARY ARTERY ANEURYSM [None]
  - DEVICE OCCLUSION [None]
  - DIZZINESS [None]
  - ELECTROCARDIOGRAM T WAVE INVERSION [None]
  - HYPERHIDROSIS [None]
  - HYPOAESTHESIA [None]
  - IN-STENT CORONARY ARTERY RESTENOSIS [None]
  - KOUNIS SYNDROME [None]
  - PAIN IN EXTREMITY [None]
  - PALLOR [None]
  - PRURITUS GENERALISED [None]
  - STENT PLACEMENT [None]
